FAERS Safety Report 5374388-1 (Version None)
Quarter: 2007Q2

REPORT INFORMATION
  Report Type: 
  Country: None (occurrence: None)
  Receive Date: 20070629
  Receipt Date: 20060808
  Transmission Date: 20071010
  Serious: No
  Sender: FDA-Public Use
  Company Number: A0616080A

PATIENT
  Sex: Male

DRUGS (1)
  1. ALBUTEROL [Suspect]
     Indication: DRUG USE FOR UNKNOWN INDICATION
     Route: 065

REACTIONS (1)
  - FEELING JITTERY [None]
